FAERS Safety Report 12673483 (Version 1)
Quarter: 2016Q3

REPORT INFORMATION
  Report Type: Report from Study
  Country: US (occurrence: US)
  Receive Date: 20160822
  Receipt Date: 20160822
  Transmission Date: 20161109
  Serious: Yes (Other)
  Sender: FDA-Public Use
  Company Number: US-GILEAD-2016-0229811

PATIENT
  Age: 75 Year
  Sex: Female

DRUGS (2)
  1. AMBRISENTAN [Suspect]
     Active Substance: AMBRISENTAN
     Indication: PRODUCT USED FOR UNKNOWN INDICATION
     Dosage: 5 MG, QD
     Route: 065
     Dates: start: 20160127
  2. REVATIO [Concomitant]
     Active Substance: SILDENAFIL CITRATE

REACTIONS (4)
  - Migraine [Recovered/Resolved]
  - Fall [Unknown]
  - Fatigue [Unknown]
  - Syncope [Unknown]

NARRATIVE: CASE EVENT DATE: 201607
